FAERS Safety Report 8042662-6 (Version None)
Quarter: 2012Q1

REPORT INFORMATION
  Report Type: 
  Country: None (occurrence: None)
  Receive Date: 20120112
  Receipt Date: 20120106
  Transmission Date: 20120608
  Serious: Yes (Other)
  Sender: FDA-Public Use
  Company Number: US-MERCK-1201USA00692

PATIENT
  Age: 79 Year
  Sex: Female
  Weight: 71 kg

DRUGS (13)
  1. REVLIMID [Suspect]
     Dosage: EVERY OTHER DAY ON DAYS 1-14 EVERY 21 DAY
     Route: 048
     Dates: start: 20111107
  2. VELCADE [Concomitant]
     Route: 065
     Dates: end: 20110805
  3. DECADRON [Suspect]
     Indication: MULTIPLE MYELOMA
     Dosage: DAYS 1, 2, 4, 5, 8, 9, 11, 12 Q12D
     Route: 048
     Dates: start: 20110718, end: 20110805
  4. ACYCLOVIR [Concomitant]
     Route: 065
  5. REVLIMID [Suspect]
     Dosage: EVERY OTHER DAY ON DAYS 1-14 EVERY 21 DAY
     Route: 048
     Dates: start: 20110810
  6. ALLOPURINOL [Concomitant]
     Route: 065
  7. DECADRON [Suspect]
     Dosage: DAYS 1, 2, 4, 5, 8, 9, 11, 12 Q12D
     Route: 048
     Dates: end: 20111010
  8. LOSARTAN POTASSIUM [Concomitant]
     Route: 048
  9. LASIX [Concomitant]
     Route: 065
  10. HUMALOG [Concomitant]
     Route: 065
  11. LEVOTHYROXINE SODIUM [Concomitant]
     Route: 065
  12. PANTOPRAZOLE [Concomitant]
     Route: 065
  13. REVLIMID [Suspect]
     Indication: MULTIPLE MYELOMA
     Dosage: EVERY OTHER DAY ON DAYS 1-14 EVERY 21 DAY
     Route: 048
     Dates: start: 20100901

REACTIONS (3)
  - DEMENTIA [None]
  - DRUG TOLERANCE [None]
  - PLASMABLASTIC LYMPHOMA [None]
